FAERS Safety Report 7996827-X (Version None)
Quarter: 2011Q4

REPORT INFORMATION
  Report Type: 
  Country: None (occurrence: None)
  Receive Date: 20111221
  Receipt Date: 20111212
  Transmission Date: 20120403
  Serious: Yes (Hospitalization)
  Sender: FDA-Public Use
  Company Number: US-BAYER-2011-065225

PATIENT
  Age: 18 Year
  Sex: Female
  Weight: 61.224 kg

DRUGS (12)
  1. AZITHROMYCIN [Concomitant]
     Dosage: UNK
     Dates: start: 20090413
  2. ACIPHEX [Concomitant]
     Indication: GASTROOESOPHAGEAL REFLUX DISEASE
     Dosage: 20 MG, UNK
     Dates: start: 20090424
  3. SERTRALINE HYDROCHLORIDE [Concomitant]
     Dosage: 50 MG, UNK
     Dates: start: 20090506
  4. TOPAMAX [Concomitant]
     Dosage: UNK
     Dates: start: 20090101
  5. AMOZ TR-K CLAV [Concomitant]
     Dosage: UNK
     Dates: start: 20090401
  6. YAZ [Suspect]
     Indication: CONTRACEPTION
     Dosage: UNK
     Dates: start: 20080903, end: 20091201
  7. DEXAMETHASONE [Concomitant]
     Dosage: 4 MG, UNK
     Dates: start: 20090420
  8. YAZ [Suspect]
     Indication: ACNE
  9. YAZ [Suspect]
     Indication: PREMENSTRUAL SYNDROME
  10. CIPROFLOXACIN [Concomitant]
     Dosage: 500 MG, UNK
     Dates: start: 20090403, end: 20090611
  11. PREDNISONE TAB [Concomitant]
     Dosage: 10 MG, UNK
     Dates: start: 20090414
  12. ONDANSETRON [Concomitant]
     Indication: NAUSEA
     Dosage: 4 MG, UNK
     Dates: start: 20090619

REACTIONS (3)
  - GALLBLADDER DISORDER [None]
  - BILIARY DYSKINESIA [None]
  - CHOLECYSTITIS CHRONIC [None]
